FAERS Safety Report 18768331 (Version 2)
Quarter: 2021Q1

REPORT INFORMATION
  Report Type: Report from Study
  Country: US (occurrence: US)
  Receive Date: 20210121
  Receipt Date: 20210218
  Transmission Date: 20210419
  Serious: Yes (Hospitalization, Other)
  Sender: FDA-Public Use
  Company Number: US-TAKEDA-US201619178

PATIENT
  Age: 2 Year
  Sex: Male

DRUGS (1)
  1. IDURSULFASE [Suspect]
     Active Substance: IDURSULFASE
     Indication: MUCOPOLYSACCHARIDOSIS II
     Dosage: UNK, 1/WEEK
     Route: 042
     Dates: start: 20160128

REACTIONS (9)
  - Ear infection [Recovering/Resolving]
  - Influenza [Recovering/Resolving]
  - Hospitalisation [Recovering/Resolving]
  - Oxygen saturation decreased [Recovering/Resolving]
  - Device related infection [Recovering/Resolving]
  - Endotracheal intubation [Recovering/Resolving]
  - Haematoma [Recovering/Resolving]
  - Nasopharyngitis [Recovering/Resolving]
  - Seizure [Recovering/Resolving]

NARRATIVE: CASE EVENT DATE: 20161208
